FAERS Safety Report 4984783-8 (Version None)
Quarter: 2006Q2

REPORT INFORMATION
  Report Type: 
  Country: None (occurrence: None)
  Receive Date: 20060427
  Receipt Date: 20051012
  Transmission Date: 20061013
  Serious: Yes (Hospitalization)
  Sender: FDA-Public Use
  Company Number: US-MERCK-0510USA07035

PATIENT
  Age: 53 Year
  Sex: Male
  Weight: 102 kg

DRUGS (7)
  1. VIOXX [Suspect]
     Indication: ARTHRALGIA
     Route: 048
     Dates: start: 20000101, end: 20040701
  2. VIOXX [Suspect]
     Indication: MUSCULOSKELETAL DISCOMFORT
     Route: 048
     Dates: start: 20000101, end: 20040701
  3. NEURONTIN [Concomitant]
     Route: 065
  4. ZOCOR [Concomitant]
     Route: 065
  5. PRINIVIL [Concomitant]
     Route: 065
  6. ULTRAM [Concomitant]
     Route: 065
  7. TAGAMET [Concomitant]
     Route: 065

REACTIONS (6)
  - ARTERIOSCLEROSIS CORONARY ARTERY [None]
  - CHEST PAIN [None]
  - COLONIC POLYP [None]
  - CORONARY ARTERY DISEASE [None]
  - CORONARY ARTERY OCCLUSION [None]
  - MYOCARDIAL INFARCTION [None]
